FAERS Safety Report 5772030-9 (Version None)
Quarter: 2008Q2

REPORT INFORMATION
  Report Type: 
  Country: None (occurrence: None)
  Receive Date: 20080612
  Receipt Date: 20080612
  Transmission Date: 20081010
  Serious: Yes (Hospitalization)
  Sender: FDA-Public Use
  Company Number: None

PATIENT
  Age: 78 Year
  Sex: Male
  Weight: 89.5 kg

DRUGS (17)
  1. COUMADIN [Suspect]
     Indication: ATRIAL FIBRILLATION
     Dosage: 4 MG QHS PO//1 WEEK AT THIS CURRENT DO
     Route: 048
  2. LIPITOR [Concomitant]
  3. COREG [Concomitant]
  4. LANTUS [Concomitant]
  5. POTASSIUM CHLORIDE [Concomitant]
  6. MIRAPEX [Concomitant]
  7. AMBIEN [Concomitant]
  8. BISACODYL [Concomitant]
  9. BIDI [Concomitant]
  10. COUMADIN [Concomitant]
  11. LASIX [Concomitant]
  12. AMIODARONE HCL [Concomitant]
  13. MUCINEX [Concomitant]
  14. NITROGLYCERIN [Concomitant]
  15. ZAROXOLYN [Concomitant]
  16. MULTIVITAMIN FOLGARD [Concomitant]
  17. ASPIRIN [Concomitant]

REACTIONS (5)
  - ANAEMIA [None]
  - HYPOTENSION [None]
  - INTERNATIONAL NORMALISED RATIO DECREASED [None]
  - INTERNATIONAL NORMALISED RATIO INCREASED [None]
  - UPPER GASTROINTESTINAL HAEMORRHAGE [None]
